FAERS Safety Report 20354711 (Version 7)
Quarter: 2022Q3

REPORT INFORMATION
  Report Type: Report from Study
  Country: US (occurrence: US)
  Receive Date: 20220120
  Receipt Date: 20220804
  Transmission Date: 20221026
  Serious: Yes (Other)
  Sender: FDA-Public Use
  Company Number: US-NOVARTISTESTPH-NVSC2022US008789

PATIENT
  Sex: Female

DRUGS (1)
  1. ENTRESTO [Suspect]
     Active Substance: SACUBITRIL\VALSARTAN
     Indication: Product used for unknown indication
     Dosage: 1 DOSAGE FORM (49/51 MG), BID
     Route: 065

REACTIONS (13)
  - Cataract [Unknown]
  - Thrombosis [Unknown]
  - Dry mouth [Unknown]
  - Decreased appetite [Unknown]
  - Wheezing [Unknown]
  - Dyspnoea [Unknown]
  - Oropharyngeal discomfort [Unknown]
  - Fatigue [Recovering/Resolving]
  - Somnolence [Unknown]
  - Initial insomnia [Recovering/Resolving]
  - Cough [Recovering/Resolving]
  - Dizziness [Unknown]
  - Product dose omission in error [Unknown]
